FAERS Safety Report 7040458-5 (Version None)
Quarter: 2010Q4

REPORT INFORMATION
  Report Type: 
  Country: None (occurrence: None)
  Receive Date: 20101008
  Receipt Date: 20101008
  Transmission Date: 20110411
  Serious: No
  Sender: FDA-Public Use
  Company Number: None

PATIENT
  Sex: Female

DRUGS (1)
  1. LEVEMIR [Suspect]
     Indication: DIABETES MELLITUS
     Dosage: 24 UNITS 1/DAY SHOT
     Dates: start: 20090301, end: 20100801

REACTIONS (5)
  - ABASIA [None]
  - ABDOMINAL PAIN UPPER [None]
  - MUSCLE TIGHTNESS [None]
  - MYALGIA [None]
  - RASH [None]
